FAERS Safety Report 7945637-8 (Version None)
Quarter: 2011Q4

REPORT INFORMATION
  Report Type: 
  Country: None (occurrence: None)
  Receive Date: 20111125
  Receipt Date: 20111114
  Transmission Date: 20120403
  Serious: Yes (Other)
  Sender: FDA-Public Use
  Company Number: 2011P1011194

PATIENT

DRUGS (5)
  1. PROPOFOL [Concomitant]
  2. ATROPINE [Concomitant]
  3. NEOSTIGMINE [Concomitant]
  4. ROCURONIUM BROMIDE [Concomitant]
  5. FENTANYL [Suspect]
     Indication: GENERAL ANAESTHESIA
     Dosage: IV
     Route: 042

REACTIONS (5)
  - VENTRICULAR EXTRASYSTOLES [None]
  - DRUG RESISTANCE [None]
  - MATERNAL DRUGS AFFECTING FOETUS [None]
  - CARDIOVASCULAR DISORDER [None]
  - RESPIRATORY DISORDER [None]
